FAERS Safety Report 9849810 (Version 1)
Quarter: 2014Q1

REPORT INFORMATION
  Report Type: Spontaneous
  Country: GB (occurrence: GB)
  Receive Date: 20140128
  Receipt Date: 20140128
  Transmission Date: 20141002
  Serious: Yes (Other)
  Sender: FDA-Public Use
  Company Number: GB-MYLANLABS-2014S1000843

PATIENT
  Sex: Female

DRUGS (20)
  1. CETIRIZINE [Suspect]
     Indication: ANGIOEDEMA
  2. CETIRIZINE [Suspect]
     Indication: URTICARIA CHRONIC
  3. CICLOSPORIN [Suspect]
     Indication: ANGIOEDEMA
  4. CICLOSPORIN [Suspect]
     Indication: URTICARIA CHRONIC
  5. LORATADINE [Suspect]
     Indication: ANGIOEDEMA
  6. LORATADINE [Suspect]
     Indication: URTICARIA CHRONIC
  7. DAPSONE [Suspect]
     Indication: ANGIOEDEMA
  8. DAPSONE [Suspect]
     Indication: URTICARIA CHRONIC
  9. FEXOFENADINE [Suspect]
     Indication: ANGIOEDEMA
  10. FEXOFENADINE [Suspect]
     Indication: URTICARIA CHRONIC
  11. HYDROXYCHLOROQUINE [Suspect]
     Indication: ANGIOEDEMA
  12. HYDROXYCHLOROQUINE [Suspect]
     Indication: URTICARIA CHRONIC
  13. HYDROXYCHLOROQUINE [Suspect]
     Indication: ANGIOEDEMA
  14. HYDROXYCHLOROQUINE [Suspect]
     Indication: URTICARIA CHRONIC
  15. HYDROXYZINE [Suspect]
     Indication: ANGIOEDEMA
  16. HYDROXYZINE [Suspect]
     Indication: URTICARIA CHRONIC
  17. METHOTREXATE [Suspect]
     Indication: ANGIOEDEMA
  18. METHOTREXATE [Suspect]
     Indication: URTICARIA CHRONIC
  19. PREDNISOLONE [Suspect]
     Indication: ANGIOEDEMA
     Dosage: 25-40 MG PER WEEK FOR THREE WEEKS
  20. PREDNISOLONE [Suspect]
     Indication: URTICARIA CHRONIC
     Dosage: 25-40 MG PER WEEK FOR THREE WEEKS

REACTIONS (3)
  - Asthma [Unknown]
  - Blood pressure increased [Unknown]
  - Drug ineffective [Unknown]
